FAERS Safety Report 26063286 (Version 1)
Quarter: 2025Q4

REPORT INFORMATION
  Report Type: Spontaneous
  Country: JP (occurrence: JP)
  Receive Date: 20251119
  Receipt Date: 20251119
  Transmission Date: 20260118
  Serious: Yes (Other)
  Sender: Kenvue
  Company Number: JP-KENVUE-20251106773

PATIENT
  Age: 8 Decade

DRUGS (1)
  1. MINOXIDIL [Suspect]
     Active Substance: MINOXIDIL
     Indication: Androgenetic alopecia
     Dosage: UNK
     Route: 065

REACTIONS (1)
  - Prostate cancer [Unknown]
